FAERS Safety Report 10081969 (Version 2)
Quarter: 2014Q2

REPORT INFORMATION
  Report Type: Spontaneous
  Country: US (occurrence: None)
  Receive Date: 20140414
  Receipt Date: 20140519
  Transmission Date: 20141212
  Serious: Yes (Death, Other)
  Sender: FDA-Public Use
  Company Number: 2014P1002807

PATIENT
  Age: 37 Year
  Sex: Female

DRUGS (12)
  1. MYORISAN [Suspect]
     Indication: GLIOBLASTOMA
     Route: 048
     Dates: end: 20140223
  2. MYORISAN 40 MG [Concomitant]
     Indication: GLIOBLASTOMA
     Route: 048
     Dates: end: 20140223
  3. DEXAMETHASONE [Concomitant]
  4. AMLODIPINE [Concomitant]
  5. IBUPROFEN [Concomitant]
  6. VIMPAT [Concomitant]
  7. KEPPRA [Concomitant]
  8. LISINOPRIL [Concomitant]
  9. ONDANSETRON [Concomitant]
  10. MAXALT-MLT [Concomitant]
  11. TOPAMAX [Concomitant]
  12. AVASTIN [Concomitant]

REACTIONS (3)
  - Glioblastoma [None]
  - Neoplasm progression [None]
  - Off label use [None]
